FAERS Safety Report 9965034 (Version 1)
Quarter: 2014Q1

REPORT INFORMATION
  Report Type: Report from Study
  Country: US (occurrence: US)
  Receive Date: 20140305
  Receipt Date: 20140305
  Transmission Date: 20141002
  Serious: No
  Sender: FDA-Public Use
  Company Number: US-ABBVIE-13P-163-1127721-00

PATIENT
  Sex: Male
  Weight: 91.71 kg

DRUGS (4)
  1. HUMIRA [Suspect]
     Indication: PSORIASIS
     Dates: start: 201105
  2. HUMIRA [Suspect]
     Dates: start: 20130720
  3. LEVOTHYROXINE [Concomitant]
     Indication: PRODUCT USED FOR UNKNOWN INDICATION
  4. SUN LAMP THERAPY [Concomitant]
     Indication: PSORIASIS

REACTIONS (1)
  - Psoriasis [Unknown]
